FAERS Safety Report 15853911 (Version 1)
Quarter: 2019Q1

REPORT INFORMATION
  Report Type: Spontaneous
  Country: US (occurrence: US)
  Receive Date: 20190121
  Receipt Date: 20190121
  Transmission Date: 20190417
  Serious: Yes (Other)
  Sender: FDA-Public Use
  Company Number: None

PATIENT
  Age: 14 Year
  Sex: Male
  Weight: 42.3 kg

DRUGS (1)
  1. ERWINAZE [Suspect]
     Active Substance: ASPARAGINASE ERWINIA CHRYSANTHEMI
     Indication: CHEMOTHERAPY
     Dosage: ?          OTHER FREQUENCY:MWF;?
     Route: 040
     Dates: start: 20190121, end: 20190121

REACTIONS (2)
  - Throat irritation [None]
  - Cough [None]

NARRATIVE: CASE EVENT DATE: 20190121
